FAERS Safety Report 6044978-1 (Version None)
Quarter: 2009Q1

REPORT INFORMATION
  Report Type: 
  Country: None (occurrence: None)
  Receive Date: 20090121
  Receipt Date: 20090116
  Transmission Date: 20090719
  Serious: No
  Sender: FDA-Public Use
  Company Number: US-JNJFOC-20090103830

PATIENT
  Age: 19 Year
  Sex: Female

DRUGS (2)
  1. PALIPERIDONE [Suspect]
     Indication: PSYCHOTIC DISORDER
     Route: 048
  2. ESCITALOPRAM [Concomitant]
     Indication: DEPRESSION

REACTIONS (1)
  - GALACTORRHOEA [None]
